FAERS Safety Report 16261619 (Version 1)
Quarter: 2019Q2

REPORT INFORMATION
  Report Type: Spontaneous
  Country: JP (occurrence: JP)
  Receive Date: 20190501
  Receipt Date: 20190501
  Transmission Date: 20190711
  Serious: Yes (Hospitalization)
  Sender: FDA-Public Use
  Company Number: JP-PFIZER INC-2019177243

PATIENT
  Age: 61 Year
  Sex: Male

DRUGS (8)
  1. WYPAX [Suspect]
     Active Substance: LORAZEPAM
     Dosage: 1.5 MG, 1X/DAY
     Route: 048
  2. RISPERDAL [Suspect]
     Active Substance: RISPERIDONE
     Dosage: 2 ML, 1X/DAY
     Route: 048
  3. FLUNITRAZEPAM [Suspect]
     Active Substance: FLUNITRAZEPAM
     Dosage: 2 MG, 1X/DAY
     Route: 048
  4. ABILIFY [Suspect]
     Active Substance: ARIPIPRAZOLE
     Indication: SCHIZOPHRENIA
     Dosage: UNK (400 MG DUAL CHAMBER SYRINGE)
     Route: 030
     Dates: start: 20190312
  5. FLUVOXAMINE MALEATE. [Suspect]
     Active Substance: FLUVOXAMINE MALEATE
     Dosage: 100 MG, 1X/DAY
     Route: 048
  6. ABILIFY [Suspect]
     Active Substance: ARIPIPRAZOLE
     Indication: SCHIZOPHRENIA
     Dosage: 12 MG, 1X/DAY
     Route: 048
  7. SODIUM VALPROATE [Suspect]
     Active Substance: VALPROATE SODIUM
     Dosage: 400 MG, 1X/DAY
     Route: 048
  8. ZOPICLONE [Suspect]
     Active Substance: ZOPICLONE
     Dosage: 10 MG, 1X/DAY
     Route: 048

REACTIONS (1)
  - Fracture [Unknown]
